FAERS Safety Report 4752835-3 (Version None)
Quarter: 2005Q3

REPORT INFORMATION
  Report Type: 
  Country: None (occurrence: None)
  Receive Date: 20050714
  Receipt Date: 20050121
  Transmission Date: 20060218
  Serious: Yes (Hospitalization, Other)
  Sender: FDA-Public Use
  Company Number: 200417372US

PATIENT
  Age: 73 Year
  Sex: Male
  Weight: 90.9 kg

DRUGS (6)
  1. TAXOTERE [Suspect]
     Indication: PROSTATE CANCER
     Dosage: 30 MG/M**2 CYC IVF
     Dates: start: 20031120
  2. TAXOTERE [Suspect]
     Indication: PROSTATE CANCER
     Dosage: 30 MG/M**2 CYC IVF
     Dates: start: 20040920
  3. WARFARIN SODIUM [Concomitant]
  4. SIMVASTATIN ??/??/2003 [Concomitant]
  5. ZOLEDRONIC ACID (ZOMETA) [Concomitant]
  6. LEUPRORELIN ACETATE (LUPRON) [Concomitant]

REACTIONS (4)
  - ARRHYTHMIA [None]
  - LACRIMATION INCREASED [None]
  - PLEURAL EFFUSION [None]
  - PULMONARY EMBOLISM [None]
